FAERS Safety Report 8289754-4 (Version None)
Quarter: 2012Q2

REPORT INFORMATION
  Report Type: 
  Country: None (occurrence: None)
  Receive Date: 20120417
  Receipt Date: 20120411
  Transmission Date: 20120825
  Serious: No
  Sender: FDA-Public Use
  Company Number: US-PFIZER INC-2012091354

PATIENT
  Sex: Female

DRUGS (3)
  1. ZYPREXA [Suspect]
     Dosage: UNK
  2. GEODON [Suspect]
     Dosage: UNK
  3. ALBUTEROL [Suspect]
     Dosage: UNK
     Route: 055

REACTIONS (1)
  - DRUG HYPERSENSITIVITY [None]
